FAERS Safety Report 4631094-6 (Version None)
Quarter: 2005Q2

REPORT INFORMATION
  Report Type: 
  Country: None (occurrence: None)
  Receive Date: 20050406
  Receipt Date: 20050406
  Transmission Date: 20051028
  Serious: Yes (Hospitalization)
  Sender: FDA-Public Use
  Company Number: None

PATIENT
  Age: 48 Year
  Sex: Male

DRUGS (4)
  1. ASPIRIN [Suspect]
     Indication: CARDIAC DISORDER
     Dosage: 325 MG PO DAILY; CHRONIC
     Route: 048
  2. ASPIRIN [Suspect]
     Indication: PROPHYLAXIS
     Dosage: 325 MG PO DAILY; CHRONIC
     Route: 048
  3. XANAX [Concomitant]
  4. CAPSACIN [Concomitant]

REACTIONS (3)
  - CHEST PAIN [None]
  - FAECAL OCCULT BLOOD POSITIVE [None]
  - GASTROINTESTINAL ULCER [None]
